FAERS Safety Report 22775678 (Version 3)
Quarter: 2024Q3

REPORT INFORMATION
  Report Type: Spontaneous
  Country: US (occurrence: US)
  Receive Date: 20230802
  Receipt Date: 20240731
  Transmission Date: 20241016
  Serious: Yes (Other)
  Sender: MERCK
  Company Number: US-009507513-2307USA012501

PATIENT
  Age: 73 Year
  Sex: Male

DRUGS (6)
  1. KEYTRUDA [Suspect]
     Active Substance: PEMBROLIZUMAB
     Indication: Product used for unknown indication
     Dosage: UNK
     Route: 065
  2. CABOMETYX [Suspect]
     Active Substance: CABOZANTINIB S-MALATE
     Indication: Renal cancer
     Dosage: 60 MILLIGRAM, QD
     Route: 048
     Dates: start: 202306
  3. CABOMETYX [Suspect]
     Active Substance: CABOZANTINIB S-MALATE
     Indication: Renal cancer
  4. CABOMETYX [Suspect]
     Active Substance: CABOZANTINIB S-MALATE
     Indication: Metastases to lung
  5. INLYTA [Suspect]
     Active Substance: AXITINIB
     Indication: Product used for unknown indication
     Dosage: UNK
     Route: 065
  6. ORGOVYX [Concomitant]
     Active Substance: RELUGOLIX

REACTIONS (7)
  - Malignant neoplasm progression [Recovering/Resolving]
  - Blood glucose fluctuation [Unknown]
  - Blood glucose increased [Unknown]
  - Diarrhoea [Unknown]
  - Fatigue [Unknown]
  - Asthenia [Unknown]
  - Product dose omission issue [Unknown]

NARRATIVE: CASE EVENT DATE: 20230623
